FAERS Safety Report 24653828 (Version 1)
Quarter: 2024Q4

REPORT INFORMATION
  Report Type: Spontaneous
  Country: US (occurrence: None)
  Receive Date: 20241121
  Receipt Date: 20241121
  Transmission Date: 20250114
  Serious: Yes (Other)
  Sender: Public
  Company Number: None

PATIENT
  Age: 56 Year
  Sex: Female
  Weight: 74.25 kg

DRUGS (16)
  1. XGEVA [Suspect]
     Active Substance: DENOSUMAB
     Indication: Breast cancer metastatic
     Dates: start: 20200420, end: 20240819
  2. XGEVA [Suspect]
     Active Substance: DENOSUMAB
     Indication: Breast cancer stage IV
  3. XELODA [Concomitant]
     Active Substance: CAPECITABINE
  4. LYNPARZA [Concomitant]
     Active Substance: OLAPARIB
  5. ATENOLOL [Concomitant]
  6. HYDROCHLOROTHIAZIDE [Concomitant]
     Active Substance: HYDROCHLOROTHIAZIDE
  7. LORAZEPAM [Concomitant]
     Active Substance: LORAZEPAM
  8. TRAMADOL [Concomitant]
     Active Substance: TRAMADOL
  9. IBUPROFEN [Concomitant]
     Active Substance: IBUPROFEN
  10. PENTOXIFYLINE ER [Concomitant]
  11. REPATHA [Concomitant]
     Active Substance: EVOLOCUMAB
  12. Caltrate Bone Magnesium Oxide [Concomitant]
  13. Nature^s Bounty Sleep [Concomitant]
  14. One a Day Women^s petites multivitamin [Concomitant]
  15. Probiotics [Concomitant]
  16. VITAMIN E [Concomitant]
     Active Substance: .ALPHA.-TOCOPHEROL

REACTIONS (4)
  - Exposed bone in jaw [None]
  - Gingival pain [None]
  - Therapy interrupted [None]
  - Osteonecrosis of jaw [None]

NARRATIVE: CASE EVENT DATE: 20240902
